FAERS Safety Report 11519861 (Version 2)
Quarter: 2015Q4

REPORT INFORMATION
  Report Type: Spontaneous
  Country: US (occurrence: None)
  Receive Date: 20150916
  Receipt Date: 20151009
  Transmission Date: 20160304
  Serious: Yes (Hospitalization, Other)
  Sender: FDA-Public Use
  Company Number: 1713747-2015-999313

PATIENT
  Age: 65 Year
  Sex: Male
  Weight: 122.47 kg

DRUGS (7)
  1. ATENOLOL. [Concomitant]
     Active Substance: ATENOLOL
  2. RENVELA [Concomitant]
     Active Substance: SEVELAMER CARBONATE
  3. SENSIPAR (CINACALCET) [Concomitant]
  4. LIBERTY CYCLER CASSETTE [Concomitant]
     Active Substance: DEVICE
  5. LIBERTY CYCLER [Concomitant]
     Active Substance: DEVICE
  6. LOSARTAN. [Concomitant]
     Active Substance: LOSARTAN
  7. DELFLEX [Suspect]
     Active Substance: CALCIUM CHLORIDE\DEXTROSE MONOHYDRATE\MAGNESIUM CHLORIDE\SODIUM CHLORIDE\SODIUM LACTATE
     Indication: CHRONIC KIDNEY DISEASE
     Dosage: DAILY/IP
     Route: 033
     Dates: start: 20121210

REACTIONS (18)
  - Brain natriuretic peptide increased [None]
  - Treatment noncompliance [None]
  - Haemoglobin decreased [None]
  - Haematocrit decreased [None]
  - Cardiomegaly [None]
  - Blood potassium increased [None]
  - Left ventricular hypertrophy [None]
  - Blood chloride decreased [None]
  - Blood urea increased [None]
  - Sinus bradycardia [None]
  - Pulmonary oedema [None]
  - Device malfunction [None]
  - Pneumonia [None]
  - Blood sodium decreased [None]
  - Blood creatinine increased [None]
  - White blood cell count increased [None]
  - Dyspnoea [None]
  - Tachypnoea [None]

NARRATIVE: CASE EVENT DATE: 20150826
